FAERS Safety Report 18866496 (Version 3)
Quarter: 2021Q1

REPORT INFORMATION
  Report Type: Report from Study
  Country: US (occurrence: US)
  Receive Date: 20210208
  Receipt Date: 20210317
  Transmission Date: 20210420
  Serious: Yes (Hospitalization)
  Sender: FDA-Public Use
  Company Number: US-JNJFOC-20210209614

PATIENT
  Age: 19 Year
  Sex: Male
  Weight: 83.9 kg

DRUGS (47)
  1. MIDAZOLAM. [Concomitant]
     Active Substance: MIDAZOLAM
  2. LIDOCAINE. [Concomitant]
     Active Substance: LIDOCAINE
  3. ENOXAPARIN [Concomitant]
     Active Substance: ENOXAPARIN
  4. SALINE [SODIUM CHLORIDE] [Concomitant]
     Active Substance: SODIUM CHLORIDE
  5. MESALAMINE. [Concomitant]
     Active Substance: MESALAMINE
  6. DIPHENHYDRAMINE. [Concomitant]
     Active Substance: DIPHENHYDRAMINE
  7. AUGMENTIN [Concomitant]
     Active Substance: AMOXICILLIN\CLAVULANATE POTASSIUM
  8. HYDROXYZINE [Concomitant]
     Active Substance: HYDROXYZINE HYDROCHLORIDE
  9. INFLIXIMAB, RECOMBINANT [Suspect]
     Active Substance: INFLIXIMAB
     Indication: INFLAMMATORY BOWEL DISEASE
     Route: 042
     Dates: start: 20170928
  10. MORPHINE [Concomitant]
     Active Substance: MORPHINE
  11. ONDANSETRON [Concomitant]
     Active Substance: ONDANSETRON
  12. GABAPENTIN. [Concomitant]
     Active Substance: GABAPENTIN
  13. SIMETHICONE (DIMETHICONE) [Concomitant]
     Active Substance: DIMETHICONE
  14. MELATONIN [Concomitant]
     Active Substance: MELATONIN
  15. OXYCODONE [Concomitant]
     Active Substance: OXYCODONE
  16. SUGAMMADEX [Concomitant]
     Active Substance: SUGAMMADEX
  17. DEXMEDETOMIDINE. [Concomitant]
     Active Substance: DEXMEDETOMIDINE
  18. DEXAMETHASONE. [Concomitant]
     Active Substance: DEXAMETHASONE
  19. HYDROMORPHONE [Concomitant]
     Active Substance: HYDROMORPHONE
  20. FENTANYL. [Concomitant]
     Active Substance: FENTANYL
  21. HALOPERIDOL. [Concomitant]
     Active Substance: HALOPERIDOL
  22. METRONIDAZOLE. [Concomitant]
     Active Substance: METRONIDAZOLE
  23. VECURONIUM [Concomitant]
     Active Substance: VECURONIUM BROMIDE
  24. APIXABAN [Concomitant]
     Active Substance: APIXABAN
  25. ACETAMINOPHEN. [Concomitant]
     Active Substance: ACETAMINOPHEN
  26. ALTEPLASE. [Concomitant]
     Active Substance: ALTEPLASE
  27. MAGNESIUM SULFATE. [Concomitant]
     Active Substance: MAGNESIUM SULFATE
  28. PIPERACILLIN AND TAZOBACTAM [Concomitant]
     Active Substance: PIPERACILLIN SODIUM\TAZOBACTAM SODIUM
  29. KETAMINE [Concomitant]
     Active Substance: KETAMINE
  30. HEPARIN [Concomitant]
     Active Substance: HEPARIN SODIUM
  31. NALOXONE [Concomitant]
     Active Substance: NALOXONE
  32. CEFAZOLIN [Concomitant]
     Active Substance: CEFAZOLIN
  33. LEVOFLOXACIN. [Concomitant]
     Active Substance: LEVOFLOXACIN
  34. DEXTROSE. [Concomitant]
     Active Substance: DEXTROSE
  35. CHLORHEXIDINE [Concomitant]
     Active Substance: CHLORHEXIDINE
  36. XELJANZ [Suspect]
     Active Substance: TOFACITINIB CITRATE
     Indication: PRODUCT USED FOR UNKNOWN INDICATION
     Route: 065
  37. LACTATED RINGERS SOLUTION [Concomitant]
     Active Substance: CALCIUM CHLORIDE\POTASSIUM CHLORIDE\SODIUM CHLORIDE\SODIUM LACTATE
  38. EPHEDRINE. [Concomitant]
     Active Substance: EPHEDRINE
  39. IBUPROFEN. [Concomitant]
     Active Substance: IBUPROFEN
  40. DIATRIZOATE MEGLUMINE [Concomitant]
     Active Substance: DIATRIZOATE MEGLUMINE
  41. RAMELTEON [Concomitant]
     Active Substance: RAMELTEON
  42. IOHEXOL [Concomitant]
     Active Substance: IOHEXOL
  43. LORAZEPAM. [Concomitant]
     Active Substance: LORAZEPAM
  44. CLINISOL [BENZALKONIUM CHLORIDE] [Concomitant]
  45. HYDROCORTISONE SODIUM SUCCINATE [Concomitant]
     Active Substance: HYDROCORTISONE SODIUM SUCCINATE
  46. PROPOFOL. [Concomitant]
     Active Substance: PROPOFOL
  47. SUCCINYLCHOLINE [SUXAMETHONIUM] [Concomitant]
     Active Substance: SUCCINYLCHOLINE

REACTIONS (4)
  - Colitis ulcerative [Recovered/Resolved with Sequelae]
  - Abdominal abscess [Recovered/Resolved]
  - Small intestinal obstruction [Recovered/Resolved]
  - Deep vein thrombosis [Recovered/Resolved with Sequelae]

NARRATIVE: CASE EVENT DATE: 20201214
